FAERS Safety Report 5483585-6 (Version None)
Quarter: 2007Q4

REPORT INFORMATION
  Report Type: 
  Country: None (occurrence: None)
  Receive Date: 20071009
  Receipt Date: 20070926
  Transmission Date: 20080405
  Serious: Yes (Hospitalization)
  Sender: FDA-Public Use
  Company Number: 2007BI020421

PATIENT
  Age: 58 Year
  Sex: Female
  Weight: 73.4827 kg

DRUGS (2)
  1. AVONEX [Suspect]
     Indication: MULTIPLE SCLEROSIS
     Dosage: 30 UG;QW;IM
     Route: 030
     Dates: end: 20030101
  2. AVONEX [Suspect]
     Indication: MULTIPLE SCLEROSIS
     Dosage: 30 UG;QW;IM
     Route: 030
     Dates: start: 20030101, end: 20070501

REACTIONS (3)
  - CHEST PAIN [None]
  - HYPERTENSION [None]
  - HYPOTENSION [None]
